FAERS Safety Report 6668917-5 (Version None)
Quarter: 2010Q2

REPORT INFORMATION
  Report Type: 
  Country: None (occurrence: None)
  Receive Date: 20100402
  Receipt Date: 20100320
  Transmission Date: 20101027
  Serious: Yes (Hospitalization, Disabling)
  Sender: FDA-Public Use
  Company Number: LVR-00195

PATIENT
  Sex: Female
  Weight: 43.5453 kg

DRUGS (1)
  1. LO/OVRAL-28 [Suspect]
     Indication: MIGRAINE
     Dates: start: 19850101, end: 20090805

REACTIONS (60)
  - ABASIA [None]
  - AGGRESSION [None]
  - ALOPECIA [None]
  - AMENORRHOEA [None]
  - ANGER [None]
  - ANXIETY [None]
  - ASTHENIA [None]
  - AUTOIMMUNE THYROIDITIS [None]
  - BEDRIDDEN [None]
  - BLADDER DISORDER [None]
  - BLADDER PAIN [None]
  - BLINDNESS TRANSIENT [None]
  - BRAIN INJURY [None]
  - BURNING MOUTH SYNDROME [None]
  - CATATONIA [None]
  - CHEST PAIN [None]
  - CONVULSION [None]
  - DISLOCATION OF VERTEBRA [None]
  - DISTURBANCE IN ATTENTION [None]
  - DRUG INEFFECTIVE FOR UNAPPROVED INDICATION [None]
  - DRY MOUTH [None]
  - ENDOMETRIOSIS [None]
  - FALL [None]
  - FLUID INTAKE REDUCED [None]
  - GASTROINTESTINAL DISORDER [None]
  - GINGIVAL BLEEDING [None]
  - GINGIVAL DISCOLOURATION [None]
  - HAIR GROWTH ABNORMAL [None]
  - HYPOAESTHESIA ORAL [None]
  - HYPOPHAGIA [None]
  - IMPAIRED DRIVING ABILITY [None]
  - IMPAIRED SELF-CARE [None]
  - INSOMNIA [None]
  - JOINT DISLOCATION [None]
  - MENOPAUSAL DISORDER [None]
  - MIGRAINE [None]
  - MUSCLE ATROPHY [None]
  - NAUSEA [None]
  - NO THERAPEUTIC RESPONSE [None]
  - ORAL DISORDER [None]
  - PAIN [None]
  - PAIN IN JAW [None]
  - PALPITATIONS [None]
  - POSTMENOPAUSE [None]
  - PSYCHOTIC DISORDER [None]
  - RASH [None]
  - SCREAMING [None]
  - SKIN ATROPHY [None]
  - SLEEP DISORDER [None]
  - SOCIAL PROBLEM [None]
  - SPINAL FRACTURE [None]
  - SUICIDAL IDEATION [None]
  - THINKING ABNORMAL [None]
  - TOOTH DISCOLOURATION [None]
  - TOOTH DISORDER [None]
  - TOOTH EROSION [None]
  - TREMOR [None]
  - UTERINE LEIOMYOMA [None]
  - VAGINAL DISORDER [None]
  - WEIGHT DECREASED [None]
